FAERS Safety Report 6144514-5 (Version None)
Quarter: 2009Q2

REPORT INFORMATION
  Report Type: 
  Country: None (occurrence: None)
  Receive Date: 20090406
  Receipt Date: 20090323
  Transmission Date: 20091009
  Serious: Yes (Hospitalization, Disabling, Other)
  Sender: FDA-Public Use
  Company Number: US-ROCHE-612095

PATIENT
  Sex: Male
  Weight: 83.5 kg

DRUGS (7)
  1. PEGASYS [Suspect]
     Route: 058
     Dates: start: 20081205
  2. PEGASYS [Suspect]
     Route: 058
     Dates: start: 20090106, end: 20090202
  3. COPEGUS [Suspect]
     Dosage: TAKEN 400 MG IN MORNING AND 600 MG IN THE EVENING
     Route: 048
     Dates: start: 20081205, end: 20090202
  4. NADOLOL [Concomitant]
     Indication: HYPERTENSION
     Route: 048
  5. AMBIEN [Concomitant]
     Indication: INSOMNIA
     Dosage: DRUG : AMBIEN HS TAKEN AT BED TIME PRN (AS PER NEEDED)
     Route: 048
  6. TYLENOL [Concomitant]
     Route: 048
     Dates: start: 20081205, end: 20090202
  7. BENADRYL [Concomitant]
     Dosage: TAKEN PRIOR TO PEG-INTERFERON ALFA 2A EACH WEEK
     Route: 048
     Dates: start: 20081205, end: 20090202

REACTIONS (4)
  - FACIAL PALSY [None]
  - GUILLAIN-BARRE SYNDROME [None]
  - HAEMOGLOBIN DECREASED [None]
  - PLATELET COUNT DECREASED [None]
